FAERS Safety Report 7439624-6 (Version None)
Quarter: 2011Q2

REPORT INFORMATION
  Report Type: 
  Country: None (occurrence: None)
  Receive Date: 20110427
  Receipt Date: 20110419
  Transmission Date: 20111010
  Serious: Yes (Hospitalization)
  Sender: FDA-Public Use
  Company Number: TW-ROXANE LABORATORIES, INC.-2011-RO-00540RO

PATIENT
  Age: 36 Year
  Sex: Female
  Weight: 70 kg

DRUGS (5)
  1. RISPERIDONE [Suspect]
     Indication: SCHIZOPHRENIA
     Dosage: 6 MG
  2. ZOTEPINE [Suspect]
     Indication: SCHIZOPHRENIA
     Dosage: 100 MG
  3. FLUPHENAZINE DECANOATE [Suspect]
     Indication: SCHIZOPHRENIA
     Route: 030
     Dates: start: 20081216
  4. AMISULPRIDE [Suspect]
     Indication: SCHIZOPHRENIA
     Dosage: 600 MG
  5. RISPERIDONE [Suspect]
     Dosage: 4 MG
     Dates: start: 20081030

REACTIONS (2)
  - NEUROLEPTIC MALIGNANT SYNDROME [None]
  - DRUG INEFFECTIVE [None]
